FAERS Safety Report 9044176 (Version 1)
Quarter: 2013Q1

REPORT INFORMATION
  Report Type: Report from Study
  Country: US (occurrence: US)
  Receive Date: 20130130
  Receipt Date: 20130130
  Transmission Date: 20140127
  Serious: No
  Sender: FDA-Public Use
  Company Number: US-ABBOTT-12P-163-0955334-00

PATIENT
  Age: 41 Year
  Sex: Male

DRUGS (4)
  1. HUMIRA 40 MG/0.8 ML PEN [Suspect]
     Indication: PSORIASIS
     Dates: start: 201205
  2. UNSPECIFIED INGREDIENT [Suspect]
     Indication: HEPATITIS
  3. VICTIRELLA [Concomitant]
     Indication: HEPATITIS C
     Dosage: 18 TABLETS DAILY
  4. ROBIMID [Concomitant]
     Indication: GASTRIC DISORDER
     Dosage: 6 TABLETS DAILY = 3 TABLETS IN THE AM + 3 TABLETS IN THE PM
     Route: 048

REACTIONS (3)
  - Dizziness [Not Recovered/Not Resolved]
  - Headache [Not Recovered/Not Resolved]
  - Somnolence [Not Recovered/Not Resolved]
